FAERS Safety Report 13053533 (Version 1)
Quarter: 2016Q4

REPORT INFORMATION
  Report Type: Spontaneous
  Country: US (occurrence: US)
  Receive Date: 20161221
  Receipt Date: 20161221
  Transmission Date: 20170207
  Serious: Yes (Hospitalization)
  Sender: FDA-Public Use
  Company Number: None

PATIENT
  Age: 67 Year
  Sex: Male
  Weight: 218 kg

DRUGS (1)
  1. CEFTAZIDIME 2 GM SAGENT [Suspect]
     Active Substance: CEFTAZIDIME
     Indication: PYELONEPHRITIS
     Route: 042
     Dates: start: 20161117, end: 20161117

REACTIONS (1)
  - Anaphylactic reaction [None]

NARRATIVE: CASE EVENT DATE: 20161117
